FAERS Safety Report 24380726 (Version 4)
Quarter: 2024Q4

REPORT INFORMATION
  Report Type: Spontaneous
  Country: US (occurrence: US)
  Receive Date: 20240930
  Receipt Date: 20241111
  Transmission Date: 20250115
  Serious: No
  Sender: TRAVERE THERAPEUTICS
  Company Number: US-TRAVERE-2024TVT00942

PATIENT
  Age: 34 Year
  Sex: Male

DRUGS (3)
  1. FILSPARI [Suspect]
     Active Substance: SPARSENTAN
     Indication: IgA nephropathy
     Route: 048
     Dates: start: 20240918, end: 20240920
  2. FILSPARI [Suspect]
     Active Substance: SPARSENTAN
     Route: 048
     Dates: start: 202409
  3. VALSARTAN [Suspect]
     Active Substance: VALSARTAN
     Indication: Product used for unknown indication
     Route: 048

REACTIONS (9)
  - Nausea [None]
  - Chromaturia [Unknown]
  - Somnolence [Unknown]
  - Dizziness [None]
  - Contraindicated product administered [Unknown]
  - Decreased appetite [Unknown]
  - Vomiting [Unknown]
  - Fatigue [Unknown]
  - Weight decreased [Unknown]
